FAERS Safety Report 8152273-X (Version None)
Quarter: 2012Q1

REPORT INFORMATION
  Report Type: 
  Country: None (occurrence: None)
  Receive Date: 20120221
  Receipt Date: 20120216
  Transmission Date: 20120608
  Serious: No
  Sender: FDA-Public Use
  Company Number: US-PFIZER INC-2011285650

PATIENT
  Sex: Female
  Weight: 88.889 kg

DRUGS (9)
  1. CADUET [Suspect]
     Indication: HYPERTENSION
  2. LABETALOL [Concomitant]
     Indication: HYPERTENSION
  3. LISINOPRIL [Concomitant]
     Indication: BLOOD PRESSURE ABNORMAL
     Dosage: 12.5 MG, 2X/DAY
  4. LISINOPRIL [Concomitant]
     Indication: HYPERTENSION
  5. CADUET [Suspect]
     Indication: BLOOD CHOLESTEROL ABNORMAL
     Dosage: [AMLODIPINE BESYLATE 10MG]/[ATORVASTATIN CALCIUM 20MG] DAILY
     Route: 048
     Dates: end: 20111201
  6. CADUET [Suspect]
     Indication: BLOOD PRESSURE ABNORMAL
  7. GLUCOTROL [Concomitant]
     Indication: DIABETES MELLITUS
     Dosage: 2.5 MG, DAILY
     Route: 048
  8. CADUET [Suspect]
     Indication: BLOOD CHOLESTEROL INCREASED
  9. LABETALOL [Concomitant]
     Indication: BLOOD PRESSURE ABNORMAL
     Dosage: 200 MG, DAILY

REACTIONS (3)
  - DRUG INTOLERANCE [None]
  - CHEST DISCOMFORT [None]
  - WEIGHT DECREASED [None]
